FAERS Safety Report 4627180-7 (Version None)
Quarter: 2005Q2

REPORT INFORMATION
  Report Type: 
  Country: None (occurrence: None)
  Receive Date: 20050405
  Receipt Date: 20050321
  Transmission Date: 20051028
  Serious: Yes (Other)
  Sender: FDA-Public Use
  Company Number: GB-ROCHE-399199

PATIENT
  Age: 62 Year
  Sex: Male
  Weight: 89.3 kg

DRUGS (6)
  1. CAPECITABINE [Suspect]
     Dosage: INTERMITTENT THERAPY OF 2 WEEKS TREATMENT FOLLOWED BY ONE WEEK REST IN A 3 WEEKS CYCLE.
     Route: 048
     Dates: start: 20041220
  2. BEVACIZUMAB [Suspect]
     Dosage: ON DAY 1 OF EACH 3 WEEK CYCLE.
     Route: 042
     Dates: start: 20041220, end: 20050321
  3. OXALIPLATIN [Suspect]
     Dosage: ACTUAL DOSE: 270 MG.  ON DAY ONE OF EVERY 3 WEEK CYCLE.
     Route: 042
     Dates: start: 20041220
  4. ATENOLOL [Concomitant]
  5. PRAVASTATIN [Concomitant]
  6. ASPIRIN [Concomitant]

REACTIONS (1)
  - COMPUTERISED TOMOGRAM THORAX ABNORMAL [None]
